FAERS Safety Report 19227923 (Version 1)
Quarter: 2021Q2

REPORT INFORMATION
  Report Type: Spontaneous
  Country: SE (occurrence: SE)
  Receive Date: 20210507
  Receipt Date: 20210507
  Transmission Date: 20210717
  Serious: Yes (Hospitalization)
  Sender: FDA-Public Use
  Company Number: SE-TEVA-2021-SE-1907540

PATIENT
  Age: 76 Year
  Sex: Male

DRUGS (6)
  1. OLANZAPINE. [Suspect]
     Active Substance: OLANZAPINE
     Dosage: 40MILLIGRAM
     Dates: start: 20210324, end: 20210324
  2. STESOLID 2 MG TABLETT [Suspect]
     Active Substance: DIAZEPAM
     Dosage: 16MILLIGRAM
     Dates: start: 20210324, end: 20210324
  3. CITALOPRAM [Suspect]
     Active Substance: CITALOPRAM HYDROBROMIDE
     Dosage: 40MILLIGRAM
     Dates: start: 20210324, end: 20210324
  4. AKINETON [Suspect]
     Active Substance: BIPERIDEN HYDROCHLORIDE
     Dosage: 24MILLIGRAM
     Dates: start: 20210324, end: 20210324
  5. HYDROCHLOROTHIAZIDE/LOSARTAN [Suspect]
     Active Substance: HYDROCHLOROTHIAZIDE\LOSARTAN
     Dosage: 50 MG/12,5 MG:UNIT DOSE:4DOSAGEFORM
     Dates: start: 20210324, end: 20210324
  6. METFORMIN [Suspect]
     Active Substance: METFORMIN HYDROCHLORIDE
     Dosage: 9000MILLIGRAM
     Dates: start: 20210324, end: 20210324

REACTIONS (3)
  - Toxicity to various agents [Recovered/Resolved]
  - Urinary retention [Recovered/Resolved]
  - Accidental overdose [Recovered/Resolved]

NARRATIVE: CASE EVENT DATE: 20210324
